FAERS Safety Report 17718268 (Version 1)
Quarter: 2020Q2

REPORT INFORMATION
  Report Type: Spontaneous
  Country: GB (occurrence: GB)
  Receive Date: 20200428
  Receipt Date: 20200428
  Transmission Date: 20200714
  Serious: Yes (Hospitalization)
  Sender: FDA-Public Use
  Company Number: GB-MYLANLABS-2020M1041539

PATIENT
  Age: 84 Year
  Sex: Male

DRUGS (12)
  1. METFORMIN [Concomitant]
     Active Substance: METFORMIN HYDROCHLORIDE
     Dosage: 1500 MILLIGRAM, QD
     Route: 048
  2. FUROSEMIDE. [Concomitant]
     Active Substance: FUROSEMIDE
     Dosage: 40 MILLIGRAM, QD
     Route: 048
  3. AMIODARONE [Suspect]
     Active Substance: AMIODARONE
     Indication: PRODUCT USED FOR UNKNOWN INDICATION
     Dosage: 200 MILLIGRAM, QD
     Route: 048
     Dates: end: 20200309
  4. PARACETAMOL [Concomitant]
     Active Substance: ACETAMINOPHEN
     Dosage: 500 MILLIGRAM 1-2 QDS PRN
     Route: 048
  5. ATORVASTATIN [Concomitant]
     Active Substance: ATORVASTATIN
     Dosage: 80 MILLIGRAM, QD, NIGHT
     Route: 048
  6. CALCIUM + VITAMIN D3 [Concomitant]
     Active Substance: CALCIUM CARBONATE\CHOLECALCIFEROL
     Dosage: 2 DOSAGE FORM, QD, 400UNIT / 1.5G CHEWABLE
     Route: 048
  7. TRIMBOW [Concomitant]
     Active Substance: BECLOMETHASONE DIPROPIONATE\FORMOTEROL FUMARATE\GLYCOPYRROLATE
     Dosage: 2 DOSAGE FORM, QD, 87MICROGRAMS/DOSE / 5MICROGRAMS/DOSE / 9MICROGRAMS/DOSE
     Route: 050
  8. SALBUTAMOL [Concomitant]
     Active Substance: ALBUTEROL
     Dosage: UNK, 1-2 PUFFS PRN, AS NECESSARY
     Route: 050
  9. WARFARIN [Concomitant]
     Active Substance: WARFARIN
     Indication: ATRIAL FIBRILLATION
     Dosage: 1 MILLIGRAM, MDU
     Route: 048
  10. HEPARINOID [Concomitant]
     Active Substance: CHONDROITIN SULFATE (BOVINE)
     Dosage: 1 DOSAGE FORM, APPLY DAILY PRN, AS NECESSARY
     Route: 061
  11. LISINOPRIL. [Concomitant]
     Active Substance: LISINOPRIL
     Dosage: 5 MILLIGRAM, QD
     Route: 048
  12. DICLOFENAC [Concomitant]
     Active Substance: DICLOFENAC
     Dosage: 3 DOSAGE FORM, QD, APPLY PRN
     Route: 061

REACTIONS (3)
  - Tachycardia [Recovered/Resolved]
  - Dyspnoea [Recovered/Resolved]
  - Hyperthyroidism [Recovering/Resolving]

NARRATIVE: CASE EVENT DATE: 20200302
